FAERS Safety Report 13901408 (Version 1)
Quarter: 2017Q3

REPORT INFORMATION
  Report Type: Spontaneous
  Country: US (occurrence: US)
  Receive Date: 20170824
  Receipt Date: 20170824
  Transmission Date: 20171127
  Serious: No
  Sender: FDA-Public Use
  Company Number: US-ASTRAZENECA-2007BM10399

PATIENT
  Age: 62 Year
  Sex: Female
  Weight: 72.6 kg

DRUGS (12)
  1. BYETTA [Suspect]
     Active Substance: EXENATIDE
     Indication: TYPE 2 DIABETES MELLITUS
     Route: 058
     Dates: start: 2007
  2. ATORVASTATIN [Concomitant]
     Active Substance: ATORVASTATIN
  3. BYETTA [Suspect]
     Active Substance: EXENATIDE
     Indication: TYPE 2 DIABETES MELLITUS
     Route: 058
     Dates: start: 200703, end: 200704
  4. BYETTA [Suspect]
     Active Substance: EXENATIDE
     Indication: TYPE 2 DIABETES MELLITUS
     Route: 058
  5. METOPROLOL TARTRATE. [Suspect]
     Active Substance: METOPROLOL TARTRATE
     Indication: TYPE 2 DIABETES MELLITUS
     Route: 048
     Dates: start: 2017
  6. BYDUREON [Suspect]
     Active Substance: EXENATIDE
     Route: 058
  7. METFORMIN [Concomitant]
     Active Substance: METFORMIN HYDROCHLORIDE
     Indication: TYPE 2 DIABETES MELLITUS
  8. TYLENOL PM [Concomitant]
     Active Substance: ACETAMINOPHEN\DIPHENHYDRAMINE
     Dosage: UNK
     Dates: start: 200706, end: 200706
  9. EXENATIDE. [Concomitant]
     Active Substance: EXENATIDE
  10. EXENATIDE. [Concomitant]
     Active Substance: EXENATIDE
  11. BYETTA [Suspect]
     Active Substance: EXENATIDE
     Indication: TYPE 2 DIABETES MELLITUS
     Route: 058
     Dates: start: 200704
  12. MAALOX /USA/ [Concomitant]
     Indication: DYSPEPSIA

REACTIONS (14)
  - Decreased appetite [Not Recovered/Not Resolved]
  - Intentional product misuse [Unknown]
  - Blood glucose increased [Unknown]
  - Injection site mass [Recovering/Resolving]
  - Nausea [Recovered/Resolved]
  - Injection site pain [Unknown]
  - Dyspepsia [Recovered/Resolved]
  - Influenza [Recovered/Resolved]
  - Injection site haemorrhage [Recovered/Resolved]
  - Diarrhoea [Recovered/Resolved]
  - Weight decreased [Unknown]
  - Dizziness [Recovered/Resolved]
  - Eructation [Recovered/Resolved]
  - Fatigue [Recovered/Resolved]

NARRATIVE: CASE EVENT DATE: 200706
